FAERS Safety Report 11803441 (Version 3)
Quarter: 2019Q4

REPORT INFORMATION
  Report Type: Spontaneous
  Country: US (occurrence: US)
  Receive Date: 20151204
  Receipt Date: 20191018
  Transmission Date: 20200122
  Serious: Yes (Other)
  Sender: FDA-Public Use
  Company Number: US-PFIZER INC-2015421625

PATIENT
  Age: 69 Year
  Sex: Male

DRUGS (17)
  1. VIAGRA [Suspect]
     Active Substance: SILDENAFIL CITRATE
     Dosage: 100 MG, (3 TIMES A MONTH)
     Route: 048
     Dates: start: 19990208, end: 20011029
  2. VIAGRA [Suspect]
     Active Substance: SILDENAFIL CITRATE
     Dosage: UNK
     Route: 048
     Dates: start: 20000719, end: 20120427
  3. VIAGRA [Suspect]
     Active Substance: SILDENAFIL CITRATE
     Dosage: 50 MG, ( 3TIMES A MONTH)
     Route: 048
     Dates: start: 20031106, end: 20040331
  4. CIALIS [Suspect]
     Active Substance: TADALAFIL
     Indication: ERECTILE DYSFUNCTION
     Dosage: 02 MG, (03 TIMES A MONTH)
     Route: 048
     Dates: start: 20041025, end: 20041231
  5. VIAGRA [Suspect]
     Active Substance: SILDENAFIL CITRATE
     Dosage: 100 MG, UNK
     Route: 048
     Dates: start: 20080115
  6. LEVITRA [Suspect]
     Active Substance: VARDENAFIL HYDROCHLORIDE
     Indication: ERECTILE DYSFUNCTION
     Dosage: 10 MG, (3 TIMES A MONTH)
     Dates: start: 20040127, end: 20041231
  7. LEVITRA [Suspect]
     Active Substance: VARDENAFIL HYDROCHLORIDE
     Dosage: 10 MG, (3 TIMES A MONTH)
     Dates: start: 20040122, end: 20040206
  8. VIAGRA [Suspect]
     Active Substance: SILDENAFIL CITRATE
     Dosage: 100 MG, ( 3 TIMES A MONTH)
     Route: 048
     Dates: start: 20000111, end: 20011029
  9. VIAGRA [Suspect]
     Active Substance: SILDENAFIL CITRATE
     Dosage: 100 MG, UNK
     Route: 048
     Dates: start: 20000719
  10. VIAGRA [Suspect]
     Active Substance: SILDENAFIL CITRATE
     Dosage: 50 MG, UNK
     Route: 048
     Dates: start: 20031106
  11. LEVITRA [Suspect]
     Active Substance: VARDENAFIL HYDROCHLORIDE
     Dosage: 20 MG, (3 TIMES A MONTH)
     Dates: start: 20100129, end: 20100708
  12. VIAGRA [Suspect]
     Active Substance: SILDENAFIL CITRATE
     Indication: ERECTILE DYSFUNCTION
     Dosage: 50 MG, (3 TIMES A MONTH)
     Route: 048
     Dates: start: 19980724, end: 19980922
  13. VIAGRA [Suspect]
     Active Substance: SILDENAFIL CITRATE
     Dosage: 100 MG, (3 TIMES A MONTH)
     Route: 048
     Dates: start: 20080115, end: 20140805
  14. LEVITRA [Suspect]
     Active Substance: VARDENAFIL HYDROCHLORIDE
     Dosage: 20 MG, (3 TIMES A MONTH)
     Dates: start: 20060811, end: 20061021
  15. LEVITRA [Suspect]
     Active Substance: VARDENAFIL HYDROCHLORIDE
     Dosage: 05 MG, (3 TIMES A MONTH)
     Dates: start: 20080115, end: 20081231
  16. LEVITRA [Suspect]
     Active Substance: VARDENAFIL HYDROCHLORIDE
     Dosage: 05 MG, (3 TIMES A MONTH)
     Dates: start: 20080115, end: 20080115
  17. ATORVASTATIN [Concomitant]
     Active Substance: ATORVASTATIN
     Dosage: 20 MG, UNK
     Dates: start: 20120531

REACTIONS (1)
  - Malignant melanoma [Unknown]

NARRATIVE: CASE EVENT DATE: 20120517
